FAERS Safety Report 6486763-2 (Version None)
Quarter: 2009Q4

REPORT INFORMATION
  Report Type: 
  Country: None (occurrence: None)
  Receive Date: 20091210
  Receipt Date: 20091201
  Transmission Date: 20100525
  Serious: Yes (Hospitalization, Other)
  Sender: FDA-Public Use
  Company Number: FR-JNJFOC-20080201744

PATIENT
  Age: 56 Year
  Sex: Male

DRUGS (10)
  1. REMICADE [Suspect]
     Route: 042
  2. REMICADE [Suspect]
     Route: 042
  3. REMICADE [Suspect]
     Indication: CROHN'S DISEASE
     Route: 042
  4. METHOTREXATE [Suspect]
     Dosage: ROUTE=PO
  5. METHOTREXATE [Suspect]
     Indication: CROHN'S DISEASE
     Dosage: ROUTE=SC
  6. CORTANCYL [Suspect]
     Route: 048
  7. CORTANCYL [Suspect]
     Route: 048
  8. CORTANCYL [Suspect]
     Route: 048
  9. CORTANCYL [Suspect]
     Indication: CROHN'S DISEASE
     Route: 048
  10. PREDNISONE [Concomitant]

REACTIONS (2)
  - MYCOBACTERIUM MARINUM INFECTION [None]
  - NECROTISING FASCIITIS [None]
